FAERS Safety Report 8281896-2 (Version None)
Quarter: 2012Q2

REPORT INFORMATION
  Report Type: 
  Country: None (occurrence: None)
  Receive Date: 20120413
  Receipt Date: 20120411
  Transmission Date: 20120825
  Serious: No
  Sender: FDA-Public Use
  Company Number: PHHY2012CH030084

PATIENT
  Age: 46 Year
  Sex: Male

DRUGS (4)
  1. LITHIUM CARBONATE [Concomitant]
     Dosage: 450 MG, BID
     Route: 048
  2. AMITRIPTYLINE HYDROCHLORIDE [Concomitant]
     Dosage: 25 MG, QD
     Route: 048
  3. TASIGNA [Suspect]
     Indication: CHRONIC MYELOID LEUKAEMIA
     Dosage: 300 MG, BID
     Route: 048
     Dates: start: 20120201
  4. TETRALYSAL [Concomitant]
     Dosage: 300 MG, QD
     Route: 048

REACTIONS (7)
  - VISUAL ACUITY REDUCED [None]
  - DISTURBANCE IN ATTENTION [None]
  - ALANINE AMINOTRANSFERASE INCREASED [None]
  - FATIGUE [None]
  - IMPAIRED HEALING [None]
  - DRUG INEFFECTIVE [None]
  - PRESBYOPIA [None]
